FAERS Safety Report 9798415 (Version 1)
Quarter: 2013Q4

REPORT INFORMATION
  Report Type: Spontaneous
  Country: GB (occurrence: None)
  Receive Date: 20131230
  Receipt Date: 20131230
  Transmission Date: 20140711
  Serious: Yes (Disabling)
  Sender: FDA-Public Use
  Company Number: 2013000366

PATIENT
  Age: 65 Year
  Sex: Male
  Weight: 75 kg

DRUGS (5)
  1. ACEON [Suspect]
     Route: 048
     Dates: start: 201309, end: 201310
  2. ASPIRIN [Concomitant]
  3. FLIXOTIDE (FLUTICASONE PROPIONATE) [Concomitant]
  4. NATRILIX (INDAPAMIDE) [Concomitant]
  5. ZANTAC (RANITIDINE HYDROCHLORIDE) [Concomitant]

REACTIONS (2)
  - Drug ineffective [None]
  - Product substitution issue [None]
